FAERS Safety Report 17881938 (Version 1)
Quarter: 2020Q2

REPORT INFORMATION
  Report Type: Spontaneous
  Country: US (occurrence: US)
  Receive Date: 20200610
  Receipt Date: 20200610
  Transmission Date: 20200714
  Serious: No
  Sender: FDA-Public Use
  Company Number: US-DSJP-DSU-2020-115914

PATIENT

DRUGS (2)
  1. COLESEVELAM HCL [Suspect]
     Active Substance: COLESEVELAM HYDROCHLORIDE
     Indication: HYPERSENSITIVITY
     Dosage: 6 TABS, QD
     Route: 048
     Dates: start: 202005
  2. WELCHOL [Suspect]
     Active Substance: COLESEVELAM HYDROCHLORIDE
     Indication: HYPERSENSITIVITY
     Dosage: 6 DF, QD
     Route: 048
     Dates: start: 2013, end: 202005

REACTIONS (3)
  - Off label use [Recovered/Resolved]
  - Withdrawal syndrome [Unknown]
  - Therapeutic response unexpected [Recovered/Resolved]
